FAERS Safety Report 7814205-0 (Version None)
Quarter: 2011Q4

REPORT INFORMATION
  Report Type: 
  Country: None (occurrence: None)
  Receive Date: 20111011
  Receipt Date: 20110926
  Transmission Date: 20120403
  Serious: Yes (Disabling)
  Sender: FDA-Public Use
  Company Number: JP-2011-11401

PATIENT
  Age: 77 Year
  Sex: Male
  Weight: 56 kg

DRUGS (5)
  1. SAMSCA [Suspect]
     Indication: DIURETIC THERAPY
     Dosage: 15 MG MILLIGRAM(S), QD, ORAL
     Route: 048
     Dates: start: 20110810, end: 20110816
  2. ASPIRIN [Concomitant]
  3. DORIBAX [Concomitant]
  4. MIDAZOLAM HCL [Concomitant]
  5. PLAVIX [Concomitant]

REACTIONS (1)
  - INTERSTITIAL LUNG DISEASE [None]
